FAERS Safety Report 6832681-7 (Version None)
Quarter: 2010Q3

REPORT INFORMATION
  Report Type: 
  Country: None (occurrence: None)
  Receive Date: 20100712
  Receipt Date: 20080713
  Transmission Date: 20110219
  Serious: Yes (Other)
  Sender: FDA-Public Use
  Company Number: US-PFIZER INC-2007020348

PATIENT
  Sex: Female
  Weight: 87.1 kg

DRUGS (34)
  1. CHANTIX [Suspect]
     Indication: SMOKING CESSATION THERAPY
     Route: 048
  2. ALL OTHER THERAPEUTIC PRODUCTS [Suspect]
     Indication: CONSTIPATION
  3. SEROQUEL [Suspect]
     Indication: SLEEP DISORDER
  4. FUROSEMIDE [Concomitant]
     Indication: HYPERTENSION
  5. OMEPRAZOLE [Concomitant]
  6. ALL OTHER THERAPEUTIC PRODUCTS [Concomitant]
  7. LEVOTHYROXINE [Concomitant]
  8. CALCIUM COMPOUNDS [Concomitant]
  9. POTASSIUM [Concomitant]
  10. MULTI-VITAMINS [Concomitant]
  11. MUCINEX [Concomitant]
  12. MONTELUKAST SODIUM [Concomitant]
     Indication: MULTIPLE ALLERGIES
  13. MONTELUKAST SODIUM [Concomitant]
     Indication: ASTHMA
  14. CLONAZEPAM [Concomitant]
  15. IPRATROPIUM [Concomitant]
     Route: 055
  16. ZANAFLEX [Concomitant]
  17. ALL OTHER THERAPEUTIC PRODUCTS [Concomitant]
  18. EPINEPHRINE [Concomitant]
  19. FLONASE [Concomitant]
  20. PROMETHAZINE [Concomitant]
  21. MORPHINE [Concomitant]
  22. DOCUSATE [Concomitant]
  23. DIAZEPAM [Concomitant]
  24. AMLODIPINE [Concomitant]
  25. HYDROXYZINE [Concomitant]
     Indication: MULTIPLE ALLERGIES
  26. MORPHINE SULFATE [Concomitant]
  27. AZMACORT [Concomitant]
  28. XOPENEX [Concomitant]
  29. CALCIUM [Concomitant]
  30. CARBOHYDRATES [Concomitant]
  31. GEMFIBROZIL [Concomitant]
  32. BENADRYL [Concomitant]
  33. BENZOYL PEROXIDE [Concomitant]
  34. OTHER ANTI-ASTHMATICS, INHALANTS [Concomitant]
     Indication: ASTHMA
     Route: 055

REACTIONS (26)
  - ABDOMINAL DISTENSION [None]
  - ABNORMAL DREAMS [None]
  - CHEST PAIN [None]
  - CONSTIPATION [None]
  - COUGH [None]
  - DECREASED APPETITE [None]
  - DIZZINESS [None]
  - DRY MOUTH [None]
  - FLATULENCE [None]
  - GINGIVAL BLEEDING [None]
  - GINGIVAL INFECTION [None]
  - GINGIVAL SWELLING [None]
  - HYPERTENSION [None]
  - INCREASED UPPER AIRWAY SECRETION [None]
  - INSOMNIA [None]
  - LOWER RESPIRATORY TRACT INFECTION [None]
  - NAUSEA [None]
  - NIGHTMARE [None]
  - ORAL PAIN [None]
  - RENAL PAIN [None]
  - STRESS [None]
  - THERAPY REGIMEN CHANGED [None]
  - TOBACCO USER [None]
  - TOOTH EXTRACTION [None]
  - VOMITING [None]
  - WEIGHT INCREASED [None]
